FAERS Safety Report 20670055 (Version 1)
Quarter: 2022Q2

REPORT INFORMATION
  Report Type: Spontaneous
  Country: HR (occurrence: HR)
  Receive Date: 20220404
  Receipt Date: 20220404
  Transmission Date: 20220721
  Serious: Yes (Other)
  Sender: FDA-Public Use
  Company Number: None

PATIENT
  Sex: Female

DRUGS (3)
  1. ZELDOX [Suspect]
     Active Substance: ZIPRASIDONE
     Dosage: 640 MG, 1X/DAY
     Route: 048
     Dates: start: 20211129, end: 20211129
  2. DEXKETOPROFEN\TRAMADOL [Suspect]
     Active Substance: DEXKETOPROFEN\TRAMADOL
     Dosage: 1 DF = 75 MG TRAMADOL HYDROCHLORIDE + 25 MG DEXKETOPROFEN
     Route: 048
     Dates: start: 20211129, end: 20211129
  3. DIAZEPAM [Suspect]
     Active Substance: DIAZEPAM
     Dosage: 70 MG, 1X/DAY
     Route: 048
     Dates: start: 20211129, end: 20211129

REACTIONS (2)
  - Intentional overdose [Unknown]
  - Suicide attempt [Unknown]

NARRATIVE: CASE EVENT DATE: 20211129
